FAERS Safety Report 5889236-0 (Version None)
Quarter: 2008Q3

REPORT INFORMATION
  Report Type: 
  Country: None (occurrence: None)
  Receive Date: 20080919
  Receipt Date: 20080910
  Transmission Date: 20090109
  Serious: Yes (Life-Threatening, Hospitalization, Disabling)
  Sender: FDA-Public Use
  Company Number: US-ROCHE-585693

PATIENT
  Sex: Male
  Weight: 85.7 kg

DRUGS (17)
  1. KLONOPIN [Suspect]
     Indication: DRUG USE FOR UNKNOWN INDICATION
     Route: 048
     Dates: start: 20050101, end: 20050601
  2. KLONOPIN [Suspect]
     Route: 048
     Dates: start: 20050601, end: 20060101
  3. KLONOPIN [Suspect]
     Route: 048
     Dates: start: 20060101, end: 20070101
  4. KLONOPIN [Suspect]
     Route: 048
     Dates: start: 20070101
  5. ACTIQ [Suspect]
     Indication: NECK PAIN
     Route: 002
     Dates: start: 20050701, end: 20060101
  6. ACTIQ [Suspect]
     Route: 002
     Dates: start: 20060201, end: 20060301
  7. ACTIQ [Suspect]
     Route: 002
     Dates: start: 20061002
  8. OXYCONTIN [Suspect]
     Indication: DRUG USE FOR UNKNOWN INDICATION
     Route: 048
     Dates: start: 20050101
  9. OXYCONTIN [Suspect]
     Route: 048
  10. OXYCONTIN [Suspect]
     Route: 048
  11. DILAUDID [Suspect]
     Indication: DRUG USE FOR UNKNOWN INDICATION
     Route: 065
  12. DILAUDID [Suspect]
     Dosage: ROUTE REPORTED AS: ORAL.
     Route: 065
     Dates: end: 20060101
  13. DILAUDID [Suspect]
     Route: 065
     Dates: start: 20060101
  14. SOMA [Suspect]
     Route: 065
     Dates: start: 20040101, end: 20050101
  15. SOMA [Suspect]
     Dosage: TAKEN AT BEDTIME.
     Route: 065
     Dates: start: 20050101, end: 20060101
  16. SOMA [Suspect]
     Route: 065
     Dates: start: 20060101, end: 20070101
  17. SOMA [Suspect]
     Route: 065
     Dates: start: 20070101

REACTIONS (3)
  - DENTAL CARIES [None]
  - DRUG DEPENDENCE [None]
  - MENTAL DISORDER DUE TO A GENERAL MEDICAL CONDITION [None]
